FAERS Safety Report 19620278 (Version 1)
Quarter: 2021Q3

REPORT INFORMATION
  Report Type: Spontaneous
  Country: US (occurrence: US)
  Receive Date: 20210727
  Receipt Date: 20210727
  Transmission Date: 20211014
  Serious: Yes (Other)
  Sender: FDA-Public Use
  Company Number: None

PATIENT

DRUGS (19)
  1. MULTI VITAMIN TAB [Concomitant]
     Dates: start: 20180702
  2. ARMODAFINIL TAB 50MG [Concomitant]
     Dates: start: 20180702
  3. FISH OIL CAP 1000MG [Concomitant]
     Dates: start: 20180702
  4. VITAMIN C TAB 500MG [Concomitant]
     Dates: start: 20200923
  5. BALCLOFEN TAB 10MG [Concomitant]
     Dates: start: 20180702
  6. NOTRIPTYLIN CAP 10MG [Concomitant]
     Dates: start: 20180702
  7. MURO 128 OIN 5% OP [Concomitant]
     Dates: start: 20210727
  8. AMPYRA [Suspect]
     Active Substance: DALFAMPRIDINE
     Indication: MULTIPLE SCLEROSIS
     Route: 048
     Dates: start: 20180608
  9. CALCIUM TAB 600MG [Concomitant]
     Dates: start: 20180702
  10. SYSTANE GEL DRP 0.4?0.3% [Concomitant]
     Dates: start: 20200923
  11. PROBIOTIC CAP [Concomitant]
     Dates: start: 20200923
  12. MYRBETRIQ TAB 25MG [Concomitant]
     Dates: start: 20210727
  13. ALENDRONATE [Concomitant]
     Active Substance: ALENDRONATE SODIUM
     Dates: start: 20180702
  14. KETOCONAZOLE CRE 2% [Concomitant]
     Dates: start: 20180702
  15. MELATONIN TAB 3MG [Concomitant]
     Active Substance: MELATONIN
     Dates: start: 20200923
  16. PEPPERMINT CAP 50MG [Concomitant]
     Dates: start: 20210727
  17. VITAMIN D CAP 50000UNIT [Concomitant]
     Dates: start: 20180702
  18. LORAZEPAM TAB 1MG [Concomitant]
     Dates: start: 20180702
  19. AMITIZA CAP 24MCG [Concomitant]
     Dates: start: 20200923

REACTIONS (2)
  - COVID-19 [None]
  - Micturition urgency [None]
